FAERS Safety Report 14243512 (Version 1)
Quarter: 2017Q4

REPORT INFORMATION
  Report Type: Spontaneous
  Country: CA (occurrence: CA)
  Receive Date: 20171201
  Receipt Date: 20171201
  Transmission Date: 20180321
  Serious: Yes (Other)
  Sender: FDA-Public Use
  Company Number: CA-GEHC-2017CSU003926

PATIENT

DRUGS (1)
  1. OMNIPAQUE [Suspect]
     Active Substance: IOHEXOL
     Indication: HIATUS HERNIA
     Dosage: 87 ML, SINGLE
     Route: 042
     Dates: start: 20171122, end: 20171122

REACTIONS (5)
  - Choking [Unknown]
  - Erythema [Unknown]
  - Unresponsive to stimuli [Unknown]
  - Ocular hyperaemia [Unknown]
  - Dyspnoea [Unknown]

NARRATIVE: CASE EVENT DATE: 20171122
